FAERS Safety Report 5809692-3 (Version None)
Quarter: 2008Q3

REPORT INFORMATION
  Report Type: 
  Country: None (occurrence: None)
  Receive Date: 20080711
  Receipt Date: 20080711
  Transmission Date: 20090109
  Serious: Yes (Life-Threatening, Hospitalization)
  Sender: FDA-Public Use
  Company Number: None

PATIENT
  Age: 62 Year
  Sex: Male

DRUGS (2)
  1. IODIXANOL [Suspect]
     Indication: CARDIOVASCULAR DISORDER
     Dates: start: 20080709, end: 20080709
  2. IODIXANOL [Suspect]
     Indication: SURGERY
     Dates: start: 20080709, end: 20080709

REACTIONS (1)
  - ANAPHYLACTIC REACTION [None]
